FAERS Safety Report 24662521 (Version 1)
Quarter: 2024Q4

REPORT INFORMATION
  Report Type: Spontaneous
  Country: US (occurrence: None)
  Receive Date: 20241125
  Receipt Date: 20241125
  Transmission Date: 20250115
  Serious: No
  Sender: AXSOME THERAPEUTICS, INC.
  Company Number: US-Axsome Therapeutics, Inc.-AXS202410-001612

PATIENT
  Sex: Male

DRUGS (3)
  1. AUVELITY [Suspect]
     Active Substance: BUPROPION HYDROCHLORIDE\DEXTROMETHORPHAN HYDROBROMIDE
     Indication: Major depression
     Dosage: 45-105 MG
     Route: 048
     Dates: start: 20240510
  2. AUVELITY [Suspect]
     Active Substance: BUPROPION HYDROCHLORIDE\DEXTROMETHORPHAN HYDROBROMIDE
     Dosage: 45-105 MG
     Route: 048
     Dates: start: 202405
  3. ABILIFY [Concomitant]
     Active Substance: ARIPIPRAZOLE
     Indication: Adjuvant therapy
     Route: 065
     Dates: start: 20241001

REACTIONS (1)
  - Therapeutic product effect decreased [Unknown]
